FAERS Safety Report 14548463 (Version 1)
Quarter: 2018Q1

REPORT INFORMATION
  Report Type: Spontaneous
  Country: US (occurrence: US)
  Receive Date: 20180219
  Receipt Date: 20180219
  Transmission Date: 20180509
  Serious: No
  Sender: FDA-Public Use
  Company Number: US-ROCHE-1902149

PATIENT
  Age: 62 Year
  Sex: Female
  Weight: 86.26 kg

DRUGS (13)
  1. FLUTICASONE PROPIONATE. [Concomitant]
     Active Substance: FLUTICASONE PROPIONATE
     Indication: RHINITIS ALLERGIC
     Dosage: 50 MCG/ACT, 2 SPRAYS INTRANASALLY DAILY IN EACH NOSTRIL
     Route: 045
     Dates: start: 20170125
  2. EPIPEN [Concomitant]
     Active Substance: EPINEPHRINE
     Indication: ASTHMA
     Dosage: USE 1 PEN AT ONSET OF ALLERGIC RXN
     Route: 065
     Dates: start: 20140624
  3. SINGULAIR [Concomitant]
     Active Substance: MONTELUKAST SODIUM
     Route: 048
     Dates: start: 20121002
  4. ALBUTEROL. [Concomitant]
     Active Substance: ALBUTEROL
     Dosage: 2.5 MG/3 ML (0.083%) INHALATION SOLUTION, USE 1 VIAL IN NEBULIZER 4 TIMES A DAY AS NEEDED
     Route: 065
     Dates: start: 20131211
  5. XOLAIR [Suspect]
     Active Substance: OMALIZUMAB
     Indication: ASTHMA
     Route: 058
     Dates: start: 20130902
  6. XOLAIR [Suspect]
     Active Substance: OMALIZUMAB
     Dosage: POWDER FOR INJECTION
     Route: 058
  7. INVOKANA [Concomitant]
     Active Substance: CANAGLIFLOZIN
     Dosage: CANAGLIFLOZIN (INVOKANA)
     Route: 048
     Dates: start: 20130730
  8. PREDNISONE. [Concomitant]
     Active Substance: PREDNISONE
     Dosage: 5MG TABLET
     Route: 048
     Dates: start: 20150929
  9. AMOXICILLIN/CLAVULANATE POTASSIUM [Concomitant]
     Active Substance: AMOXICILLIN\CLAVULANATE POTASSIUM
     Dosage: 875-125 MG TABLET, 1 TAB. BID WITH MEALS
     Route: 048
     Dates: start: 20170112
  10. CHLORPHENIRAMINE/HYDROCODONE [Concomitant]
     Indication: ASTHMA
     Dosage: TUSSION EX PENNKINETIC, 8 MG-10 MG/5 ML ORAL SUSPENSION, ER, 1 TSF HS
     Route: 048
     Dates: start: 20130131
  11. SODIUM CHLORIDE. [Concomitant]
     Active Substance: SODIUM CHLORIDE
     Dosage: OCEAN IRRIGATION TWICE A DAY
     Route: 045
     Dates: start: 20121002
  12. PROAIR HFA [Concomitant]
     Active Substance: ALBUTEROL SULFATE
     Dosage: ALBUTEROL (PROAIR HFA), 2 PUFFS PRN,
     Route: 065
     Dates: start: 20121002
  13. ARISTOCORT A [Concomitant]
     Indication: DERMATITIS CONTACT
     Route: 061
     Dates: start: 20140220

REACTIONS (1)
  - Herpes zoster [Unknown]

NARRATIVE: CASE EVENT DATE: 20170228
